FAERS Safety Report 4512247-4 (Version None)
Quarter: 2004Q4

REPORT INFORMATION
  Report Type: 
  Country: None (occurrence: None)
  Receive Date: 20041123
  Receipt Date: 20041109
  Transmission Date: 20050328
  Serious: Yes (Death)
  Sender: FDA-Public Use
  Company Number: FABR-10865

PATIENT
  Age: 49 Year
  Sex: Male

DRUGS (3)
  1. FABRAZYME [Suspect]
     Indication: FABRY'S DISEASE
     Dosage: 1 MG/KG Q2WKS IV
     Route: 042
     Dates: start: 20010312, end: 20011005
  2. FABRAZYME [Suspect]
     Indication: FABRY'S DISEASE
     Dosage: 0.2 MG/KG Q2WKS IV
     Route: 042
     Dates: start: 20020220, end: 20021011
  3. FABRAZYME [Suspect]
     Indication: FABRY'S DISEASE
     Dosage: 30 MG Q2WKS IV
     Route: 042
     Dates: start: 20040510, end: 20041026

REACTIONS (5)
  - CARDIAC ARREST [None]
  - CARDIAC FAILURE [None]
  - DRUG INEFFECTIVE [None]
  - HAEMODIALYSIS [None]
  - SELF-MEDICATION [None]
